FAERS Safety Report 5407093-3 (Version None)
Quarter: 2007Q3

REPORT INFORMATION
  Report Type: 
  Country: None (occurrence: None)
  Receive Date: 20070807
  Receipt Date: 20070730
  Transmission Date: 20080115
  Serious: Yes (Other)
  Sender: FDA-Public Use
  Company Number: JP-ASTRAZENECA-2007AP00595

PATIENT

DRUGS (2)
  1. ZOMIG [Suspect]
     Indication: MIGRAINE
     Route: 048
     Dates: start: 20030101
  2. SUMATRIPTAN SUCCINATE [Concomitant]
     Indication: MIGRAINE

REACTIONS (1)
  - PARALYSIS [None]
